FAERS Safety Report 8082066-3 (Version None)
Quarter: 2012Q1

REPORT INFORMATION
  Report Type: 
  Country: None (occurrence: None)
  Receive Date: 20120127
  Receipt Date: 20110228
  Transmission Date: 20120608
  Serious: No
  Sender: FDA-Public Use
  Company Number: US-ABBOTT-11P-163-0708013-00

PATIENT
  Age: 48 Year
  Sex: Female

DRUGS (13)
  1. ASCORBIC ACID [Concomitant]
     Indication: PRODUCT USED FOR UNKNOWN INDICATION
     Route: 048
  2. FOLIC ACID [Concomitant]
     Indication: RHEUMATOID ARTHRITIS
     Route: 048
  3. DEMEROL [Concomitant]
     Indication: ARTHRALGIA
     Route: 048
  4. HUMIRA [Suspect]
     Indication: RHEUMATOID ARTHRITIS
  5. FISH OIL [Concomitant]
     Indication: PRODUCT USED FOR UNKNOWN INDICATION
     Route: 048
  6. SYNTHROID [Concomitant]
     Indication: THYROID DISORDER
     Route: 048
  7. XANAX [Concomitant]
     Indication: ANXIETY
     Route: 048
  8. METHOTREXATE [Concomitant]
     Indication: RHEUMATOID ARTHRITIS
     Dosage: 2.5MG X 8 TABLETS WEEKLY
     Route: 048
  9. TOPAMAX [Concomitant]
     Indication: MIGRAINE
     Dosage: 25MG X SIX TABLETS DAILY
     Route: 048
  10. CYMBALTA [Concomitant]
     Indication: ARTHRALGIA
     Route: 048
  11. VITAMIN D [Concomitant]
     Indication: VITAMIN D DECREASED
     Dosage: 1000IIU X TWO TABLETS DAILY
     Route: 048
  12. RELAFEN [Concomitant]
     Indication: RHEUMATOID ARTHRITIS
     Route: 048
  13. PHENERGAN [Concomitant]
     Indication: NAUSEA
     Dosage: 3 TO 4 TIMES DAILY
     Route: 048

REACTIONS (3)
  - INJECTION SITE ERYTHEMA [None]
  - BRONCHITIS [None]
  - INJECTION SITE PRURITUS [None]
